FAERS Safety Report 8270465-6 (Version None)
Quarter: 2012Q2

REPORT INFORMATION
  Report Type: 
  Country: None (occurrence: None)
  Receive Date: 20120405
  Receipt Date: 20120322
  Transmission Date: 20120825
  Serious: Yes (Other)
  Sender: FDA-Public Use
  Company Number: 2012MA003662

PATIENT
  Age: 44 Year
  Sex: Female

DRUGS (1)
  1. GEMCITABINE HYDROCHLORIDE [Suspect]
     Indication: BREAST CANCER
     Dosage: 2000 MG; IV
     Route: 042
     Dates: start: 20111209, end: 20111209

REACTIONS (3)
  - DIZZINESS [None]
  - HYPOTENSION [None]
  - SWOLLEN TONGUE [None]
